FAERS Safety Report 13013192 (Version 1)
Quarter: 2016Q4

REPORT INFORMATION
  Report Type: Spontaneous
  Country: US (occurrence: US)
  Receive Date: 20161208
  Receipt Date: 20161208
  Transmission Date: 20170207
  Serious: No
  Sender: FDA-Public Use
  Company Number: None

PATIENT
  Age: 41 Year
  Sex: Female

DRUGS (1)
  1. OCTREOTIDE 50MCG/ML PFS MYLAN [Suspect]
     Active Substance: OCTREOTIDE
     Indication: DIARRHOEA
     Dosage: 50MCG/ML - ONE PEN  TWICE DAILY SC
     Route: 058
     Dates: start: 20160601

REACTIONS (1)
  - Surgery [None]

NARRATIVE: CASE EVENT DATE: 20161130
